FAERS Safety Report 21297508 (Version 1)
Quarter: 2022Q3

REPORT INFORMATION
  Report Type: Spontaneous
  Country: CN (occurrence: CN)
  Receive Date: 20220906
  Receipt Date: 20220906
  Transmission Date: 20221027
  Serious: Yes (Hospitalization)
  Sender: FDA-Public Use
  Company Number: None

PATIENT
  Age: 51 Year
  Sex: Male
  Weight: 60 kg

DRUGS (2)
  1. OLANZAPINE [Suspect]
     Active Substance: OLANZAPINE
     Indication: Affect lability
     Dosage: 3TABLET,QD (0-0-0-3 )
     Route: 048
     Dates: start: 20220522, end: 20220707
  2. OLANZAPINE [Suspect]
     Active Substance: OLANZAPINE
     Dosage: DOSE REDUCED TO 10 MG QD (0-0-2 TABLETS )
     Route: 048
     Dates: end: 20220713

REACTIONS (1)
  - Hepatic function abnormal [Recovering/Resolving]

NARRATIVE: CASE EVENT DATE: 20220707
